FAERS Safety Report 7478289-4 (Version None)
Quarter: 2011Q2

REPORT INFORMATION
  Report Type: 
  Country: None (occurrence: None)
  Receive Date: 20110513
  Receipt Date: 20110506
  Transmission Date: 20111010
  Serious: Yes (Death, Other)
  Sender: FDA-Public Use
  Company Number: PHHY2011CN38933

PATIENT
  Age: 6 Year
  Sex: Male

DRUGS (20)
  1. VELCADE [Concomitant]
     Dosage: 0.8 MG
  2. CYCLOSPORINE [Suspect]
     Indication: STEM CELL TRANSPLANT
     Dosage: 180 ?G/L, UNK
  3. ETOPOSIDE [Concomitant]
     Dosage: 70 MG FOR 5 DAYS
  4. URBASON [Concomitant]
     Dosage: 40 MG
  5. CELLCEPT [Concomitant]
     Dosage: UNK
  6. BUSULFAN [Concomitant]
     Dosage: 15 MG/M2 FOR 5 DAYS
  7. URBASON [Concomitant]
     Dosage: 240 MG FOR 2 CONSECUTIVE DAYS
  8. CYCLOPHOSPHAMIDE [Concomitant]
     Dosage: 0.65 G/M2 FOR 1 DAY
  9. CYCLOSPORINE [Suspect]
     Dosage: 80 MG/M2, UNK
  10. FLUDARABINE PHOSPHATE [Concomitant]
     Dosage: 35 MG/M2 FOR 4 DAYS
  11. METHOTREXATE [Concomitant]
     Dosage: 5 MG
  12. ETOPOSIDE [Concomitant]
     Dosage: 100 MG/M2 FOR 5 DAYS
  13. CYCLOPHOSPHAMIDE [Concomitant]
     Dosage: 1.2 G/M2 FOR 2 DAYS
  14. PROGRAF [Concomitant]
     Dosage: UNK
  15. SIMULECT [Concomitant]
     Dosage: UNK
  16. FLUDARABINE PHOSPHATE [Concomitant]
     Dosage: 20 MG FOR 2 DAYS
  17. VELCADE [Concomitant]
     Dosage: 1 MG
  18. ETOPOSIDE [Concomitant]
     Dosage: 40 MG FOR 3 DAYS
  19. VELCADE [Concomitant]
     Dosage: 1 MG FOR 2 DAYS
  20. POLYGAM S/D [Concomitant]
     Dosage: UNK

REACTIONS (9)
  - CEREBRAL HAEMORRHAGE [None]
  - SEPSIS [None]
  - DIARRHOEA [None]
  - ENTEROCOCCAL INFECTION [None]
  - PYREXIA [None]
  - GRAFT VERSUS HOST DISEASE [None]
  - BONE MARROW FAILURE [None]
  - WHITE BLOOD CELL COUNT DECREASED [None]
  - CYTOMEGALOVIRUS INFECTION [None]
